FAERS Safety Report 4614131-4 (Version None)
Quarter: 2005Q1

REPORT INFORMATION
  Report Type: 
  Country: None (occurrence: None)
  Receive Date: 20050316
  Receipt Date: 20050228
  Transmission Date: 20050727
  Serious: Yes (Death)
  Sender: FDA-Public Use
  Company Number: 2005EU000379

PATIENT
  Age: 39 Year
  Sex: Male

DRUGS (2)
  1. PROGRAF [Suspect]
     Indication: LIVER TRANSPLANT
     Dosage: D
  2. CORTICOSTEROIDS [Concomitant]

REACTIONS (11)
  - ANAEMIA [None]
  - COMPLICATIONS OF TRANSPLANTED LIVER [None]
  - CYTOMEGALOVIRUS INFECTION [None]
  - DEPRESSION [None]
  - DIABETES MELLITUS [None]
  - DISEASE RECURRENCE [None]
  - DRUG TOLERANCE DECREASED [None]
  - HEPATIC FIBROSIS [None]
  - HEPATIC FUNCTION ABNORMAL [None]
  - HEPATITIS C [None]
  - HEPATITIS CHOLESTATIC [None]
